FAERS Safety Report 24338856 (Version 2)
Quarter: 2024Q3

REPORT INFORMATION
  Report Type: Spontaneous
  Country: US (occurrence: US)
  Receive Date: 20240919
  Receipt Date: 20240923
  Transmission Date: 20241016
  Serious: No
  Sender: TEVA
  Company Number: US-TEVA-VS-3240858

PATIENT
  Age: 72 Year
  Sex: Female

DRUGS (2)
  1. AJOVY [Suspect]
     Active Substance: FREMANEZUMAB-VFRM
     Indication: Migraine
     Route: 065
  2. DEVICE [Suspect]
     Active Substance: DEVICE
     Route: 065

REACTIONS (6)
  - Incorrect dose administered [Unknown]
  - Injection site urticaria [Unknown]
  - Device use error [Unknown]
  - Device difficult to use [Unknown]
  - Injection site pain [Unknown]
  - Incorrect dose administered by device [Unknown]
